FAERS Safety Report 24254096 (Version 9)
Quarter: 2025Q2

REPORT INFORMATION
  Report Type: Spontaneous
  Country: CA (occurrence: CA)
  Receive Date: 20240827
  Receipt Date: 20250602
  Transmission Date: 20250717
  Serious: Yes (Hospitalization, Other)
  Sender: PFIZER
  Company Number: CA-PFIZER INC-202400243664

PATIENT
  Age: 35 Year
  Sex: Female

DRUGS (10)
  1. RUXIENCE [Suspect]
     Active Substance: RITUXIMAB-PVVR
     Indication: Multiple sclerosis
     Route: 042
     Dates: start: 20240822
  2. RUXIENCE [Suspect]
     Active Substance: RITUXIMAB-PVVR
     Route: 042
     Dates: start: 20250421
  3. ACETAMINOPHEN [Concomitant]
     Active Substance: ACETAMINOPHEN
     Indication: Premedication
     Dates: start: 20240822, end: 20240822
  4. AMLODIPINE [Concomitant]
     Active Substance: AMLODIPINE BESYLATE
  5. DIPHENHYDRAMINE [Concomitant]
     Active Substance: DIPHENHYDRAMINE
     Indication: Premedication
     Dates: start: 20240822, end: 20240822
  6. GABAPENTIN [Concomitant]
     Active Substance: GABAPENTIN
  7. LYRICA [Concomitant]
     Active Substance: PREGABALIN
  8. METHYLPREDNISOLONE [Concomitant]
     Active Substance: METHYLPREDNISOLONE
     Indication: Premedication
     Dates: start: 20240822, end: 20240822
  9. NAPROXEN [Concomitant]
     Active Substance: NAPROXEN
  10. CHOLECALCIFEROL [Concomitant]
     Active Substance: CHOLECALCIFEROL

REACTIONS (21)
  - Multiple sclerosis relapse [Recovered/Resolved]
  - Sneezing [Recovered/Resolved]
  - Nasal pruritus [Recovered/Resolved]
  - Tachycardia [Recovered/Resolved]
  - Wheezing [Unknown]
  - Chest discomfort [Unknown]
  - Dyspnoea exertional [Unknown]
  - Feeling cold [Recovered/Resolved]
  - Feeling hot [Unknown]
  - Peripheral coldness [Unknown]
  - Panic attack [Unknown]
  - Vomiting [Recovered/Resolved]
  - Toothache [Unknown]
  - Rhinorrhoea [Unknown]
  - Hyperhidrosis [Unknown]
  - Nasopharyngitis [Recovered/Resolved]
  - Asthenia [Unknown]
  - Headache [Unknown]
  - Cough [Unknown]
  - Throat irritation [Recovered/Resolved]
  - Pharyngeal paraesthesia [Recovered/Resolved]

NARRATIVE: CASE EVENT DATE: 20240822
